FAERS Safety Report 4448112-0 (Version None)
Quarter: 2004Q3

REPORT INFORMATION
  Report Type: 
  Country: None (occurrence: None)
  Receive Date: 20040812
  Receipt Date: 20040517
  Transmission Date: 20050211
  Serious: No
  Sender: FDA-Public Use
  Company Number: USA040567764

PATIENT
  Age: 64 Year
  Sex: Male
  Weight: 102 kg

DRUGS (2)
  1. CIALIS [Suspect]
     Indication: ERECTILE DYSFUNCTION
     Dosage: 20 MG AS NEEDED
     Dates: start: 20040514, end: 20040515
  2. CRESTOR [Concomitant]

REACTIONS (3)
  - MUSCLE CRAMP [None]
  - PAIN [None]
  - THERAPEUTIC RESPONSE DECREASED [None]
